FAERS Safety Report 8834464 (Version 3)
Quarter: 2012Q4

REPORT INFORMATION
  Report Type: 
  Country: IT (occurrence: IT)
  Receive Date: 20121010
  Receipt Date: 20121212
  Transmission Date: 20130627
  Serious: Yes (Other)
  Sender: FDA-Public Use
  Company Number: PHHY2012IT087750

PATIENT
  Sex: Female

DRUGS (4)
  1. FEMARA [Suspect]
     Indication: BREAST CANCER
     Dosage: 2.5 mg, daily
     Route: 048
     Dates: start: 20080301
  2. FEMARA [Suspect]
     Dosage: 10mg, daily
     Route: 048
     Dates: end: 20120930
  3. ESOMPRAL [Concomitant]
     Indication: GASTRODUODENITIS
     Dosage: 20 mg, UNK
     Route: 048
  4. ANTIHYPERTENSIVE DRUGS [Concomitant]
     Indication: HYPERTENSIVE CRISIS

REACTIONS (5)
  - Venous thrombosis [Recovering/Resolving]
  - Hypertensive crisis [Unknown]
  - Gastritis [Unknown]
  - Red blood cell sedimentation rate increased [Unknown]
  - Blood cholesterol increased [Unknown]
